FAERS Safety Report 4409587-6 (Version None)
Quarter: 2004Q3

REPORT INFORMATION
  Report Type: 
  Country: None (occurrence: None)
  Receive Date: 20040726
  Receipt Date: 20040708
  Transmission Date: 20050211
  Serious: Yes (Other)
  Sender: FDA-Public Use
  Company Number: 2004-DE-03914UP

PATIENT
  Age: 69 Year
  Sex: Female

DRUGS (6)
  1. MIRAPEXIN (PRAMIPEXOLE DIHYDROCHLORIDE) (TA) (PRAMIPEXOLE) [Suspect]
     Indication: PARKINSON'S DISEASE
     Dosage: PO
     Route: 048
  2. DIDRONEL (NR) [Concomitant]
  3. ASPIRIN [Concomitant]
  4. SENNA (SENNA) (NR) [Concomitant]
  5. VENTOLIN (NR) [Concomitant]
  6. BECOTIDE (BECLOMETASONE DIPROPIONATE) (NR) [Concomitant]

REACTIONS (3)
  - DEEP VEIN THROMBOSIS [None]
  - NAUSEA [None]
  - OEDEMA PERIPHERAL [None]
